FAERS Safety Report 14074835 (Version 1)
Quarter: 2017Q4

REPORT INFORMATION
  Report Type: Spontaneous
  Country: US (occurrence: US)
  Receive Date: 20171011
  Receipt Date: 20171011
  Transmission Date: 20180321
  Serious: Yes (Other)
  Sender: FDA-Public Use
  Company Number: PHEH2017US032350

PATIENT
  Sex: Female

DRUGS (1)
  1. AFINITOR [Suspect]
     Active Substance: EVEROLIMUS
     Indication: BREAST CANCER
     Dosage: 5 MG, QD
     Route: 048

REACTIONS (7)
  - Thyroid mass [Unknown]
  - Palpitations [Unknown]
  - Dysphonia [Unknown]
  - Hyperthyroidism [Unknown]
  - Pancytopenia [Unknown]
  - Hot flush [Unknown]
  - Wrong technique in product usage process [Unknown]
